FAERS Safety Report 17818302 (Version 1)
Quarter: 2020Q2

REPORT INFORMATION
  Report Type: Spontaneous
  Country: US (occurrence: US)
  Receive Date: 20200522
  Receipt Date: 20200522
  Transmission Date: 20200714
  Serious: Yes (Hospitalization, Other)
  Sender: FDA-Public Use
  Company Number: US-PURDUE PHARMA-USA-2020-0153231

PATIENT

DRUGS (1)
  1. OXYCONTIN [Suspect]
     Active Substance: OXYCODONE HYDROCHLORIDE
     Indication: PRODUCT USED FOR UNKNOWN INDICATION
     Dosage: UNKNOWN
     Route: 048

REACTIONS (8)
  - Drug dependence [Unknown]
  - Drug withdrawal syndrome [Unknown]
  - Ill-defined disorder [Unknown]
  - Pain [Unknown]
  - Anxiety [Unknown]
  - Major depression [Unknown]
  - Impaired work ability [Unknown]
  - Emotional distress [Unknown]
